FAERS Safety Report 5627399-2 (Version None)
Quarter: 2008Q1

REPORT INFORMATION
  Report Type: 
  Country: None (occurrence: None)
  Receive Date: 20080215
  Receipt Date: 20080214
  Transmission Date: 20080703
  Serious: Yes (Disabling)
  Sender: FDA-Public Use
  Company Number: TR-BRISTOL-MYERS SQUIBB COMPANY-13871389

PATIENT
  Age: 14 Year
  Sex: Male

DRUGS (1)
  1. BLEOMYCIN HCL [Suspect]
     Indication: CRANIOPHARYNGIOMA
     Dosage: ROUTE-MY

REACTIONS (3)
  - BLINDNESS [None]
  - EPILEPSY [None]
  - HEMIANOPIA [None]
